FAERS Safety Report 15299787 (Version 5)
Quarter: 2020Q3

REPORT INFORMATION
  Report Type: Spontaneous
  Country: GB (occurrence: GB)
  Receive Date: 20180821
  Receipt Date: 20200701
  Transmission Date: 20201102
  Serious: Yes (Other)
  Sender: FDA-Public Use
  Company Number: GB-SUN PHARMACEUTICAL INDUSTRIES LTD-2018R1-181948

PATIENT
  Age: 53 Year
  Sex: Male

DRUGS (5)
  1. PROPRANOLOL [Suspect]
     Active Substance: PROPRANOLOL HYDROCHLORIDE
     Indication: TACHYCARDIA
     Dosage: 40 MILLIGRAM, TID
     Route: 065
  2. PRIADEL  /00033702/ [Suspect]
     Active Substance: LITHIUM CARBONATE
     Indication: SCHIZOAFFECTIVE DISORDER
     Dosage: 800 MG, QD
     Route: 065
  3. SERTRALINE [Suspect]
     Active Substance: SERTRALINE HYDROCHLORIDE
     Indication: SCHIZOAFFECTIVE DISORDER
     Dosage: 50 MILLIGRAM, QD, (50 MG, AM)
     Route: 065
  4. CLOZARIL [Suspect]
     Active Substance: CLOZAPINE
     Indication: SCHIZOAFFECTIVE DISORDER
     Dosage: 500 MILLIGRAM, QD, 500 MG, PM
     Route: 048
     Dates: start: 20131017
  5. CLOZARIL [Suspect]
     Active Substance: CLOZAPINE
     Indication: SCHIZOAFFECTIVE DISORDER
     Dosage: 300 MILLIGRAM, QD, 300 MG, AM
     Route: 048
     Dates: start: 20131017

REACTIONS (3)
  - Neutrophilia [Recovering/Resolving]
  - Leukocytosis [Not Recovered/Not Resolved]
  - Differential white blood cell count abnormal [Recovering/Resolving]

NARRATIVE: CASE EVENT DATE: 20170130
